FAERS Safety Report 6372082-1 (Version None)
Quarter: 2009Q3

REPORT INFORMATION
  Report Type: 
  Country: None (occurrence: None)
  Receive Date: 20090918
  Receipt Date: 20090915
  Transmission Date: 20100115
  Serious: Yes (Death)
  Sender: FDA-Public Use
  Company Number: ENTC2009-0316

PATIENT
  Age: 71 Year
  Sex: Male

DRUGS (2)
  1. STALEVO 100 [Suspect]
     Dosage: 100/25/200 MG
  2. EXELON [Suspect]

REACTIONS (1)
  - DEATH [None]
